FAERS Safety Report 5068357-9 (Version None)
Quarter: 2006Q3

REPORT INFORMATION
  Report Type: 
  Country: None (occurrence: None)
  Receive Date: 20060802
  Receipt Date: 20050816
  Transmission Date: 20061208
  Serious: Yes (Hospitalization)
  Sender: FDA-Public Use
  Company Number: US-BRISTOL-MYERS SQUIBB COMPANY-13079777

PATIENT
  Age: 75 Year
  Sex: Male
  Weight: 58 kg

DRUGS (9)
  1. COUMADIN [Suspect]
     Indication: ATRIAL FIBRILLATION
     Dosage: DAILY DOSE DEPENDS ON INR READINGS
  2. ATENOLOL [Concomitant]
  3. DIAZEPAM [Concomitant]
  4. FLUNISOLIDE [Concomitant]
     Route: 045
  5. MULTI-VITAMIN [Concomitant]
  6. SIMVASTATIN [Concomitant]
  7. SYNTHROID [Concomitant]
  8. ACETAMINOPHEN [Concomitant]
  9. ASCORBIC ACID [Concomitant]

REACTIONS (2)
  - INTERNATIONAL NORMALISED RATIO INCREASED [None]
  - URINARY TRACT INFECTION [None]
